FAERS Safety Report 9230335 (Version 1)
Quarter: 2013Q2

REPORT INFORMATION
  Report Type: Spontaneous
  Country: GB (occurrence: None)
  Receive Date: 20130411
  Receipt Date: 20130411
  Transmission Date: 20140414
  Serious: Yes (Death, Hospitalization)
  Sender: FDA-Public Use
  Company Number: E2B_00000713

PATIENT
  Age: 87 Year
  Sex: Male
  Weight: 68 kg

DRUGS (6)
  1. SIMVASTATIN [Suspect]
     Indication: HYPERCHOLESTEROLAEMIA
  2. CLARITHROMYCIN [Suspect]
     Indication: OSTEOMYELITIS
     Route: 048
     Dates: start: 20121101, end: 20130211
  3. FUSIDIC ACID [Suspect]
     Indication: OSTEOMYELITIS
     Route: 048
     Dates: start: 20121220, end: 20130211
  4. ACETYLSALICYLIC ACID (ASPIRIN) [Concomitant]
  5. LANTUS /INSULIN GLARGINE [Concomitant]
  6. LANSOPRAZOLE [Concomitant]

REACTIONS (4)
  - Renal failure acute [None]
  - Medication error [None]
  - Rhabdomyolysis [None]
  - Sepsis [None]
